FAERS Safety Report 10413853 (Version 1)
Quarter: 2014Q3

REPORT INFORMATION
  Report Type: Spontaneous
  Country: JP (occurrence: JP)
  Receive Date: 20140827
  Receipt Date: 20140827
  Transmission Date: 20150326
  Serious: Yes (Death)
  Sender: FDA-Public Use
  Company Number: JP-BAUSCH-BL-2014-004071

PATIENT
  Age: 72 Year
  Sex: Female

DRUGS (7)
  1. CHOREAZINE TABLETS 12.5 MG [Suspect]
     Active Substance: TETRABENAZINE
     Route: 048
     Dates: start: 20130717
  2. SERENACE [Suspect]
     Active Substance: HALOPERIDOL
     Indication: HUNTINGTON^S DISEASE
     Route: 048
     Dates: start: 20100803, end: 20130603
  3. SERENACE [Suspect]
     Active Substance: HALOPERIDOL
     Route: 048
     Dates: start: 20130618
  4. SERENACE [Suspect]
     Active Substance: HALOPERIDOL
     Route: 048
     Dates: start: 20130604, end: 20130617
  5. CHOREAZINE TABLETS 12.5 MG [Suspect]
     Active Substance: TETRABENAZINE
     Indication: HUNTINGTON^S DISEASE
     Route: 048
     Dates: start: 20130424, end: 20130507
  6. CHOREAZINE TABLETS 12.5 MG [Suspect]
     Active Substance: TETRABENAZINE
     Route: 048
     Dates: start: 20130508, end: 20130521
  7. CHOREAZINE TABLETS 12.5 MG [Suspect]
     Active Substance: TETRABENAZINE
     Route: 048
     Dates: start: 20130522, end: 20130716

REACTIONS (2)
  - Muscular weakness [Recovered/Resolved]
  - Death [Fatal]

NARRATIVE: CASE EVENT DATE: 20130514
